FAERS Safety Report 13354535 (Version 1)
Quarter: 2017Q1

REPORT INFORMATION
  Report Type: Other
  Country: IT (occurrence: IT)
  Receive Date: 20170321
  Receipt Date: 20170321
  Transmission Date: 20170429
  Serious: Yes (Other)
  Sender: FDA-Public Use
  Company Number: IT-CELLTRION INC.-2017IT003391

PATIENT

DRUGS (2)
  1. INFLECTRA [Suspect]
     Active Substance: INFLIXIMAB-DYYB
     Dosage: 10 MG/KG, CYCLIC
     Route: 042
     Dates: start: 20170221
  2. INFLECTRA [Suspect]
     Active Substance: INFLIXIMAB-DYYB
     Indication: COLITIS ULCERATIVE
     Dosage: 5 MG/KG, CYCLIC
     Route: 042
     Dates: start: 201609

REACTIONS (3)
  - Throat tightness [Unknown]
  - Urticaria [Unknown]
  - Flushing [Unknown]

NARRATIVE: CASE EVENT DATE: 20170221
